FAERS Safety Report 11001883 (Version 2)
Quarter: 2015Q3

REPORT INFORMATION
  Report Type: Spontaneous
  Country: US (occurrence: US)
  Receive Date: 20150408
  Receipt Date: 20150806
  Transmission Date: 20151125
  Serious: Yes (Other)
  Sender: FDA-Public Use
  Company Number: US-BAYER-2015-117198

PATIENT
  Age: 30 Year
  Sex: Female
  Weight: 63 kg

DRUGS (1)
  1. MIRENA [Suspect]
     Active Substance: LEVONORGESTREL
     Indication: CONTRACEPTION
     Dosage: 20 MCG/24HR, CONT
     Route: 015
     Dates: start: 20111104, end: 20140926

REACTIONS (9)
  - Genital haemorrhage [Recovered/Resolved]
  - Pain [Recovered/Resolved]
  - Emotional distress [None]
  - Abdominal pain lower [Recovered/Resolved]
  - Back pain [None]
  - Menorrhagia [None]
  - Embedded device [Recovered/Resolved]
  - Injury [Recovered/Resolved]
  - Anxiety [None]

NARRATIVE: CASE EVENT DATE: 201307
